FAERS Safety Report 8429797-0 (Version None)
Quarter: 2012Q2

REPORT INFORMATION
  Report Type: 
  Country: None (occurrence: None)
  Receive Date: 20120518
  Receipt Date: 20120508
  Transmission Date: 20120825
  Serious: Yes (Death, Hospitalization)
  Sender: FDA-Public Use
  Company Number: 2012PROUSA01264

PATIENT
  Age: 72 Year
  Sex: Male

DRUGS (1)
  1. PROVENGE [Suspect]
     Indication: PROSTATE CANCER METASTATIC
     Dosage: 250 ML, SINGLE, INTRAVENOUS
     Route: 042
     Dates: start: 20120330, end: 20120330

REACTIONS (6)
  - DISEASE PROGRESSION [None]
  - DEHYDRATION [None]
  - RENAL FAILURE [None]
  - MALAISE [None]
  - HEPATIC FAILURE [None]
  - PROSTATE CANCER METASTATIC [None]
